FAERS Safety Report 7819253-2 (Version None)
Quarter: 2011Q4

REPORT INFORMATION
  Report Type: 
  Country: None (occurrence: None)
  Receive Date: 20111018
  Receipt Date: 20100915
  Transmission Date: 20120403
  Serious: No
  Sender: FDA-Public Use
  Company Number: US-ASTRAZENECA-2010SE43601

PATIENT
  Sex: Female
  Weight: 64.9 kg

DRUGS (1)
  1. SYMBICORT [Suspect]
     Dosage: TWO TIMES A DAY
     Route: 055
     Dates: start: 20100601

REACTIONS (5)
  - HEADACHE [None]
  - CHEST DISCOMFORT [None]
  - DYSPEPSIA [None]
  - ANXIETY [None]
  - OROPHARYNGEAL PAIN [None]
